FAERS Safety Report 10142578 (Version 1)
Quarter: 2014Q2

REPORT INFORMATION
  Report Type: Spontaneous
  Country: US (occurrence: US)
  Receive Date: 20140430
  Receipt Date: 20140430
  Transmission Date: 20141212
  Serious: Yes (Hospitalization)
  Sender: FDA-Public Use
  Company Number: US-AMGEN INC.-USASP2014030286

PATIENT
  Age: 62 Year
  Sex: Female

DRUGS (4)
  1. PROLIA [Suspect]
     Indication: OSTEOPOROSIS POSTMENOPAUSAL
     Dosage: UNK
     Route: 065
     Dates: start: 20130605
  2. PROLIA [Suspect]
     Route: 065
  3. CALTRATE PLUS                      /01438001/ [Concomitant]
  4. VITAMIN D                          /00107901/ [Concomitant]
     Dosage: 600 MG, UNK

REACTIONS (3)
  - Dizziness [Unknown]
  - Gait disturbance [Unknown]
  - Hypocalcaemia [Unknown]
